FAERS Safety Report 12852541 (Version 1)
Quarter: 2016Q4

REPORT INFORMATION
  Report Type: Spontaneous
  Country: US (occurrence: US)
  Receive Date: 20161017
  Receipt Date: 20161017
  Transmission Date: 20170207
  Serious: No
  Sender: FDA-Public Use
  Company Number: US-ASTRAZENECA-2016SF05779

PATIENT

DRUGS (1)
  1. SEROQUEL [Suspect]
     Active Substance: QUETIAPINE FUMARATE
     Dosage: DAILY SEROQUEL IN LOW DOSE HS
     Route: 048

REACTIONS (2)
  - Hypoglycaemia [Unknown]
  - Blood insulin increased [Unknown]
